FAERS Safety Report 8071216-0 (Version None)
Quarter: 2012Q1

REPORT INFORMATION
  Report Type: 
  Country: None (occurrence: None)
  Receive Date: 20120125
  Receipt Date: 20120119
  Transmission Date: 20120608
  Serious: Yes (Other)
  Sender: FDA-Public Use
  Company Number: PHHY2012BR005572

PATIENT
  Sex: Male

DRUGS (2)
  1. EXFORGE [Suspect]
     Dosage: 320/5MG
  2. EXFORGE [Suspect]
     Indication: BLOOD PRESSURE
     Dosage: 160/5MG

REACTIONS (3)
  - BLOOD PRESSURE SYSTOLIC INCREASED [None]
  - VASCULAR RUPTURE [None]
  - IMPLANT SITE EFFUSION [None]
